FAERS Safety Report 25818007 (Version 1)
Quarter: 2025Q3

REPORT INFORMATION
  Report Type: Spontaneous
  Country: GB (occurrence: GB)
  Receive Date: 20250918
  Receipt Date: 20250918
  Transmission Date: 20251021
  Serious: Yes (Hospitalization, Other)
  Sender: RANBAXY
  Company Number: GB-MHRA-MED-202508301904091420-VNZKL

PATIENT
  Age: 38 Year
  Sex: Female
  Weight: 63 kg

DRUGS (4)
  1. GANIRELIX ACETATE [Suspect]
     Active Substance: GANIRELIX ACETATE
     Indication: Product used for unknown indication
     Route: 065
     Dates: start: 20250815, end: 20250829
  2. GONAL-F [Concomitant]
     Active Substance: FOLLITROPIN
     Indication: Product used for unknown indication
     Route: 065
     Dates: start: 20250810, end: 20250820
  3. MENOTROPINS [Concomitant]
     Active Substance: MENOTROPINS
     Indication: Product used for unknown indication
     Route: 065
     Dates: start: 20250821, end: 20250822
  4. Arovi [Concomitant]
     Indication: Product used for unknown indication
     Route: 065
     Dates: start: 20250827, end: 20250830

REACTIONS (4)
  - Dyspnoea [Recovering/Resolving]
  - Blood pressure decreased [Recovering/Resolving]
  - Palpitations [Recovering/Resolving]
  - Chest discomfort [Not Recovered/Not Resolved]

NARRATIVE: CASE EVENT DATE: 20250815
